FAERS Safety Report 4453856-0 (Version None)
Quarter: 2004Q3

REPORT INFORMATION
  Report Type: 
  Country: None (occurrence: None)
  Receive Date: 20040920
  Receipt Date: 20040915
  Transmission Date: 20050211
  Serious: Yes (Life-Threatening, Hospitalization)
  Sender: FDA-Public Use
  Company Number: NL-JNJFOC-20040501550

PATIENT
  Sex: Male
  Weight: 4 kg

DRUGS (1)
  1. DAKTARIN [Suspect]
     Dosage: PATIENT PRESCRIBED HALF A MEASURING SPOON 4 TIMES A DAY
     Route: 049

REACTIONS (3)
  - ASPHYXIA [None]
  - CHOKING [None]
  - OBSTRUCTIVE AIRWAYS DISORDER [None]
